FAERS Safety Report 10178658 (Version 3)
Quarter: 2014Q4

REPORT INFORMATION
  Report Type: Spontaneous
  Country: US (occurrence: US)
  Receive Date: 20140519
  Receipt Date: 20141103
  Transmission Date: 20150528
  Serious: Yes (Hospitalization, Other)
  Sender: FDA-Public Use
  Company Number: US-BAYER-2014-073354

PATIENT
  Age: 37 Year
  Sex: Female
  Weight: 278 kg

DRUGS (2)
  1. MIRENA [Suspect]
     Active Substance: LEVONORGESTREL
     Indication: CONTRACEPTION
     Dosage: 20 MCG/24HR, CONT
     Route: 015
     Dates: start: 20060412, end: 20110510
  2. MIRENA [Suspect]
     Active Substance: LEVONORGESTREL
     Indication: CONTRACEPTION
     Dosage: 20 MCG/24HR, CONT
     Route: 015
     Dates: start: 201207

REACTIONS (7)
  - Emotional distress [None]
  - Device dislocation [None]
  - Device difficult to use [None]
  - Injury [None]
  - Embedded device [None]
  - Pain [None]
  - Device misuse [None]

NARRATIVE: CASE EVENT DATE: 201105
